FAERS Safety Report 5738213-9 (Version None)
Quarter: 2008Q2

REPORT INFORMATION
  Report Type: 
  Country: None (occurrence: None)
  Receive Date: 20080514
  Receipt Date: 20080502
  Transmission Date: 20081010
  Serious: Yes (Other)
  Sender: FDA-Public Use
  Company Number: AU-PFIZER INC-2008027936

PATIENT
  Age: 36 Year
  Sex: Female
  Weight: 77 kg

DRUGS (1)
  1. CHANTIX [Suspect]

REACTIONS (2)
  - ANXIETY [None]
  - PARANOIA [None]
